FAERS Safety Report 4808988-1 (Version None)
Quarter: 2005Q4

REPORT INFORMATION
  Report Type: 
  Country: None (occurrence: None)
  Receive Date: 20051021
  Receipt Date: 20030923
  Transmission Date: 20060501
  Serious: No
  Sender: FDA-Public Use
  Company Number: AU_030906769

PATIENT
  Age: 19 Year
  Sex: Female

DRUGS (1)
  1. OLANZAPINE [Suspect]
     Indication: PSYCHOTIC DISORDER
     Dosage: 10 MG/DAY
     Route: 048
     Dates: start: 20030801

REACTIONS (2)
  - BURNS FIRST DEGREE [None]
  - NEUTROPENIA [None]
